FAERS Safety Report 10435887 (Version 2)
Quarter: 2014Q4

REPORT INFORMATION
  Report Type: Report from Study
  Country: BR (occurrence: BR)
  Receive Date: 20140908
  Receipt Date: 20141006
  Transmission Date: 20150528
  Serious: Yes (Death, Other)
  Sender: FDA-Public Use
  Company Number: PHHY2014BR112166

PATIENT
  Age: 49 Year
  Sex: Male
  Weight: 117 kg

DRUGS (3)
  1. CABERGOLINE. [Suspect]
     Active Substance: CABERGOLINE
     Indication: BLOOD GROWTH HORMONE ABNORMAL
     Dosage: 2 DF, WEEKLY
     Route: 065
  2. SANDOSTATIN LAR DEPOT [Suspect]
     Active Substance: OCTREOTIDE ACETATE
     Indication: ACROMEGALY
     Dosage: 1 DF, QMO
     Route: 065
     Dates: end: 20140821
  3. SANDOSTATIN LAR DEPOT [Suspect]
     Active Substance: OCTREOTIDE ACETATE
     Dosage: 2 DF, QMO
     Route: 065

REACTIONS (4)
  - Cardiac arrest [Unknown]
  - Infarction [Fatal]
  - Burning sensation [Unknown]
  - Fall [Unknown]

NARRATIVE: CASE EVENT DATE: 20140901
